FAERS Safety Report 7412700-X (Version None)
Quarter: 2011Q2

REPORT INFORMATION
  Report Type: 
  Country: None (occurrence: None)
  Receive Date: 20110413
  Receipt Date: 20110408
  Transmission Date: 20111010
  Serious: Yes (Congenital Anomaly)
  Sender: FDA-Public Use
  Company Number: A0680454A

PATIENT
  Sex: Female
  Weight: 3.9 kg

DRUGS (3)
  1. XANAX [Concomitant]
     Route: 064
  2. PRENATAL VITAMINS [Concomitant]
     Route: 064
  3. PAXIL CR [Suspect]
     Indication: ANXIETY DISORDER
     Dosage: 25MG UNKNOWN
     Route: 064

REACTIONS (3)
  - CONGENITAL ANOMALY [None]
  - DRUG EXPOSURE DURING PREGNANCY [None]
  - CARDIAC MURMUR [None]
